FAERS Safety Report 4674965-7 (Version None)
Quarter: 2005Q2

REPORT INFORMATION
  Report Type: 
  Country: None (occurrence: None)
  Receive Date: 20050525
  Receipt Date: 20050510
  Transmission Date: 20051028
  Serious: Yes (Other)
  Sender: FDA-Public Use
  Company Number: 214429

PATIENT
  Sex: Female

DRUGS (2)
  1. AVASTIN [Suspect]
     Indication: NON-SMALL CELL LUNG CANCER
  2. 5FU(FLUUOROURACIL) [Concomitant]

REACTIONS (3)
  - BALANCE DISORDER [None]
  - FALL [None]
  - LABORATORY TEST ABNORMAL [None]
